FAERS Safety Report 7746872-4 (Version None)
Quarter: 2011Q3

REPORT INFORMATION
  Report Type: 
  Country: None (occurrence: None)
  Receive Date: 20110908
  Receipt Date: 20110824
  Transmission Date: 20111222
  Serious: Yes (Congenital Anomaly)
  Sender: FDA-Public Use
  Company Number: 1000023230

PATIENT
  Weight: 0.35 kg

DRUGS (2)
  1. FOLIC ACID [Concomitant]
  2. CITALOPRAM HYDROBROMIDE [Suspect]
     Dosage: 30, 20  MG (30 MG,  1 IN 1 D), TRANSDERMAL
     Route: 062
     Dates: end: 20100821

REACTIONS (3)
  - SPINA BIFIDA [None]
  - ABORTION INDUCED [None]
  - MATERNAL DRUGS AFFECTING FOETUS [None]
